FAERS Safety Report 8585210-4 (Version None)
Quarter: 2012Q2

REPORT INFORMATION
  Report Type: 
  Country: None (occurrence: None)
  Receive Date: 20120423
  Receipt Date: 20120118
  Transmission Date: 20120825
  Serious: Yes (Other)
  Sender: FDA-Public Use
  Company Number: FK201200075

PATIENT

DRUGS (2)
  1. HEPARIN SODIUM [Suspect]
     Indication: ANGIOPLASTY
     Dosage: SEE IMAGE
     Route: 042
     Dates: start: 20111222, end: 20111222
  2. HEPARIN SODIUM [Suspect]
     Indication: ANGIOPLASTY
     Dosage: SEE IMAGE
     Route: 042
     Dates: start: 20111222, end: 20111222

REACTIONS (1)
  - THROMBOSIS [None]
